FAERS Safety Report 7543767-6 (Version None)
Quarter: 2011Q2

REPORT INFORMATION
  Report Type: 
  Country: None (occurrence: None)
  Receive Date: 20110613
  Receipt Date: 20040901
  Transmission Date: 20111010
  Serious: Yes (Hospitalization)
  Sender: FDA-Public Use
  Company Number: PHEH2004US05688

PATIENT
  Sex: Female

DRUGS (10)
  1. TOPROL-XL [Concomitant]
  2. XANAX [Concomitant]
  3. WARFARIN SODIUM [Concomitant]
  4. EXELON [Suspect]
     Indication: DEMENTIA ALZHEIMER'S TYPE
     Dosage: 4.5 MG, BID
     Route: 048
     Dates: start: 20021130
  5. REMERON [Concomitant]
  6. SIMVASTATIN [Concomitant]
  7. PROCARDIA [Concomitant]
  8. EFFEXOR [Concomitant]
  9. SEROQUEL [Concomitant]
  10. NEURONTIN [Concomitant]

REACTIONS (8)
  - RECTAL HAEMORRHAGE [None]
  - NAUSEA [None]
  - MYOCARDIAL INFARCTION [None]
  - CORONARY ARTERY OCCLUSION [None]
  - CARDIAC ENZYMES INCREASED [None]
  - CHOLECYSTITIS INFECTIVE [None]
  - CHEST PAIN [None]
  - ELECTROCARDIOGRAM ABNORMAL [None]
